FAERS Safety Report 23866958 (Version 2)
Quarter: 2024Q3

REPORT INFORMATION
  Report Type: Spontaneous
  Country: US (occurrence: US)
  Receive Date: 20240517
  Receipt Date: 20240725
  Transmission Date: 20241016
  Serious: No
  Sender: AMGEN
  Company Number: US-HORIZON THERAPEUTICS-HZN-2024-001470

PATIENT
  Sex: Female

DRUGS (1)
  1. TEPEZZA [Suspect]
     Active Substance: TEPROTUMUMAB-TRBW
     Indication: Product used for unknown indication
     Dosage: UNK
     Route: 065
     Dates: start: 2020

REACTIONS (5)
  - Blood glucose increased [Unknown]
  - Hypoacusis [Unknown]
  - Arteritis [Unknown]
  - Ill-defined disorder [Unknown]
  - Lid sulcus deepened [Unknown]
